FAERS Safety Report 25100881 (Version 2)
Quarter: 2025Q2

REPORT INFORMATION
  Report Type: Spontaneous
  Country: FR (occurrence: FR)
  Receive Date: 20250320
  Receipt Date: 20250407
  Transmission Date: 20250716
  Serious: Yes (Hospitalization, Other)
  Sender: RECKITT BENCKISER
  Company Number: None

PATIENT

DRUGS (9)
  1. SUBUTEX [Suspect]
     Active Substance: BUPRENORPHINE HYDROCHLORIDE
     Indication: Product used for unknown indication
     Dosage: 24 MILLIGRAM, QD
     Route: 064
     Dates: end: 20231106
  2. ALPRAZOLAM [Suspect]
     Active Substance: ALPRAZOLAM
     Indication: Product used for unknown indication
     Route: 064
     Dates: end: 20231106
  3. ALPRAZOLAM [Suspect]
     Active Substance: ALPRAZOLAM
     Dosage: 10 MILLIGRAM, QD
     Route: 064
     Dates: end: 20231106
  4. ZOLPIDEM [Suspect]
     Active Substance: ZOLPIDEM TARTRATE
     Indication: Product used for unknown indication
     Dosage: 10 MILLIGRAM, QHS
     Route: 064
     Dates: end: 20231106
  5. MIRTAZAPINE [Suspect]
     Active Substance: MIRTAZAPINE
     Indication: Product used for unknown indication
     Dosage: 15 MILLIGRAM, QD
     Route: 064
     Dates: end: 20231106
  6. ESOMEPRAZOLE [Suspect]
     Active Substance: ESOMEPRAZOLE
     Indication: Product used for unknown indication
     Dosage: 20 MILLIGRAM, QD (1 MORNING) (ORAL SUSPENSION)
     Route: 064
     Dates: end: 20231106
  7. SYMBICORT [Suspect]
     Active Substance: BUDESONIDE\FORMOTEROL FUMARATE DIHYDRATE
     Indication: Product used for unknown indication
     Dosage: UNK BID, (1 INHALATION MORNING AND EVENING) 200/6 MICROGRAMS PER DOSE, POWDER FOR INHALATION
     Route: 064
     Dates: end: 20231106
  8. ARNICA MONTANA (HOMEOPATHIC) [Suspect]
     Active Substance: HOMEOPATHICS
     Indication: Product used for unknown indication
     Route: 064
     Dates: end: 20231106
  9. NICOTINE [Suspect]
     Active Substance: NICOTINE
     Indication: Product used for unknown indication
     Route: 064
     Dates: end: 20231106

REACTIONS (3)
  - Jaundice neonatal [Recovered/Resolved]
  - Drug withdrawal syndrome neonatal [Recovered/Resolved]
  - Foetal exposure during pregnancy [Recovered/Resolved]

NARRATIVE: CASE EVENT DATE: 20231109
